FAERS Safety Report 3906304 (Version 2)
Quarter: 2020Q3

REPORT INFORMATION
  Report Type: Report from Study
  Country: US (occurrence: US)
  Receive Date: 20030211
  Receipt Date: 20041206
  Transmission Date: 20201105
  Serious: Yes (Hospitalization)
  Sender: FDA-Public Use
  Company Number: NSADSS2003005545

PATIENT
  Age: 45 Year
  Sex: Male
  Weight: 59.42 kg

DRUGS (22)
  1. NYSTATIN. [Concomitant]
     Active Substance: NYSTATIN
     Indication: GLOSSITIS
     Dates: start: 20020116
  2. MULTIVITAMINS [Concomitant]
     Active Substance: VITAMINS
  3. ESOMPRAZOLE [Concomitant]
     Active Substance: ESOMEPRAZOLE
     Route: 049
  4. CELEXA [Concomitant]
     Active Substance: CITALOPRAM HYDROBROMIDE
     Indication: DEPRESSION
     Route: 049
  5. CELEXA [Concomitant]
     Active Substance: CITALOPRAM HYDROBROMIDE
     Dates: start: 20021124
  6. MULTIVITAMINS [Concomitant]
     Active Substance: VITAMINS
  7. MULTIVITAMINS [Concomitant]
     Active Substance: VITAMINS
  8. CLONAZEPAM. [Concomitant]
     Active Substance: CLONAZEPAM
     Route: 065
  9. MULTIVITAMINS [Concomitant]
     Active Substance: VITAMINS
  10. MULTIVITAMINS [Concomitant]
     Active Substance: VITAMINS
  11. CISAPRIDE [Suspect]
     Active Substance: CISAPRIDE
     Indication: IMPAIRED GASTRIC EMPTYING
     Route: 049
     Dates: start: 20020524, end: 20030118
  12. CISAPRIDE [Suspect]
     Active Substance: CISAPRIDE
     Route: 049
     Dates: start: 20020524, end: 20030118
  13. XANAX [Concomitant]
     Active Substance: ALPRAZOLAM
     Indication: DEPRESSION
     Route: 049
     Dates: start: 20020717
  14. ALBUTEROL. [Concomitant]
     Active Substance: ALBUTEROL
     Route: 055
     Dates: start: 20020719
  15. POTASSIUM [Concomitant]
     Active Substance: POTASSIUM
     Route: 065
  16. XANAX [Concomitant]
     Active Substance: ALPRAZOLAM
     Route: 049
     Dates: start: 20020717
  17. PULMICORT FLEXHALER [Concomitant]
     Active Substance: BUDESONIDE
     Indication: ASTHMA
     Route: 055
     Dates: start: 20020719
  18. DIAZEPAM. [Concomitant]
     Active Substance: DIAZEPAM
     Route: 049
     Dates: start: 20020910
  19. MULTIVITAMINS [Concomitant]
     Active Substance: VITAMINS
  20. MULTIVITAMINS [Concomitant]
     Active Substance: VITAMINS
  21. KLONOPIN [Concomitant]
     Active Substance: CLONAZEPAM
     Dates: start: 20020525
  22. MULTIVITAMINS [Concomitant]
     Active Substance: VITAMINS

REACTIONS (2)
  - Dilatation atrial [None]
  - Electrocardiogram QT prolonged [Recovered/Resolved]

NARRATIVE: CASE EVENT DATE: 20030116
